FAERS Safety Report 13716418 (Version 2)
Quarter: 2017Q3

REPORT INFORMATION
  Report Type: Spontaneous
  Country: US (occurrence: US)
  Receive Date: 20170705
  Receipt Date: 20170824
  Transmission Date: 20171127
  Serious: Yes (Hospitalization)
  Sender: FDA-Public Use
  Company Number: US-B.I. PHARMACEUTICALS,INC./RIDGEFIELD-2017-BI-036818

PATIENT
  Sex: Male

DRUGS (1)
  1. TRADJENTA [Suspect]
     Active Substance: LINAGLIPTIN
     Indication: PRODUCT USED FOR UNKNOWN INDICATION
     Route: 048
     Dates: start: 201605

REACTIONS (4)
  - Bedridden [Unknown]
  - Gastrointestinal tube insertion [Not Recovered/Not Resolved]
  - Chronic obstructive pulmonary disease [Unknown]
  - Tracheal disorder [Not Recovered/Not Resolved]

NARRATIVE: CASE EVENT DATE: 201611
